FAERS Safety Report 8733456 (Version 4)
Quarter: 2013Q2

REPORT INFORMATION
  Report Type: Spontaneous
  Country: AU (occurrence: AU)
  Receive Date: 20120821
  Receipt Date: 20130610
  Transmission Date: 20140414
  Serious: Yes (Hospitalization, Other)
  Sender: FDA-Public Use
  Company Number: AU-UCBSA-063712

PATIENT
  Age: 59 Year
  Sex: Female

DRUGS (10)
  1. VIMPAT [Suspect]
     Indication: PARTIAL SEIZURES
     Route: 048
     Dates: start: 20120715
  2. VIMPAT [Interacting]
     Indication: CONVULSION
     Route: 048
     Dates: start: 20120715
  3. CLONAZEPAM [Interacting]
     Route: 048
  4. CLOPINE [Interacting]
     Indication: SCHIZOPHRENIA, PARANOID TYPE
     Dosage: DAILY DOSE: 200 MG
     Route: 048
     Dates: start: 20120727, end: 20120811
  5. CLOPINE [Interacting]
     Indication: PSYCHOTIC DISORDER
     Dosage: DAILY DOSE: 200 MG
     Route: 048
     Dates: start: 20120727, end: 20120811
  6. LAMOTRIGINE [Interacting]
     Route: 048
  7. ZYPREXA [Interacting]
     Indication: SCHIZOPHRENIA
     Dosage: 10 MG MANE, 40 MG NOCTE
     Dates: end: 20120810
  8. ZYPREXA [Interacting]
     Indication: PSYCHOTIC DISORDER
     Dosage: 10 MG MANE, 40 MG NOCTE
     Dates: end: 20120810
  9. SODIUM VALPROATE [Interacting]
     Route: 048
  10. CHOLECALCIFEROL [Concomitant]
     Dosage: DOSE: 2000 U DAILY
     Route: 048

REACTIONS (4)
  - Myocarditis [Not Recovered/Not Resolved]
  - Schizophrenia [Not Recovered/Not Resolved]
  - Neuroleptic malignant syndrome [Not Recovered/Not Resolved]
  - Drug interaction [Not Recovered/Not Resolved]
